FAERS Safety Report 25364555 (Version 1)
Quarter: 2025Q2

REPORT INFORMATION
  Report Type: Report from Study
  Country: CN (occurrence: CN)
  Receive Date: 20250527
  Receipt Date: 20250527
  Transmission Date: 20250716
  Serious: Yes (Hospitalization)
  Sender: PFIZER
  Company Number: CN-PFIZER INC-PV202500062804

PATIENT
  Age: 39 Year
  Sex: Female
  Weight: 66.8 kg

DRUGS (1)
  1. TIVDAK [Suspect]
     Active Substance: TISOTUMAB VEDOTIN-TFTV
     Indication: Squamous cell carcinoma of the cervix
     Route: 042
     Dates: start: 20250428

REACTIONS (2)
  - Anaemia [Unknown]
  - Pyrexia [Unknown]
